FAERS Safety Report 4384847-6 (Version None)
Quarter: 2004Q2

REPORT INFORMATION
  Report Type: 
  Country: None (occurrence: None)
  Receive Date: 20040621
  Receipt Date: 20040615
  Transmission Date: 20050107
  Serious: Yes (Hospitalization)
  Sender: FDA-Public Use
  Company Number: THQ2004A00321

PATIENT
  Age: 72 Year
  Sex: Male

DRUGS (6)
  1. LUCRIN            (LEUPROLIDE ACETATE) [Suspect]
     Indication: PROSTATE CANCER
     Dosage: 22.5 MG (22.5 MG, 1 IN 3 M) INTRAVENOUS
     Route: 042
     Dates: start: 20031111
  2. SIMVASTATIN [Concomitant]
  3. ACETYLSALICYLIC ACID SRT [Concomitant]
  4. OMEPRAZOLE [Concomitant]
  5. METOPROLOL (METOPROLOL) [Concomitant]
  6. CLOPIDOGREL (CLOPIDOGREL) [Concomitant]

REACTIONS (6)
  - ANGINA UNSTABLE [None]
  - AORTIC VALVE DISEASE [None]
  - CEREBROVASCULAR ACCIDENT [None]
  - DILATATION ATRIAL [None]
  - MITRAL VALVE INCOMPETENCE [None]
  - PULMONARY HYPERTENSION [None]
